FAERS Safety Report 21977454 (Version 1)
Quarter: 2023Q1

REPORT INFORMATION
  Report Type: Spontaneous
  Country: FR (occurrence: FR)
  Receive Date: 20230210
  Receipt Date: 20230210
  Transmission Date: 20230417
  Serious: Yes (Hospitalization)
  Sender: FDA-Public Use
  Company Number: None

PATIENT
  Age: 38 Year
  Sex: Male
  Weight: 73 kg

DRUGS (3)
  1. TRISENOX [Suspect]
     Active Substance: ARSENIC TRIOXIDE
     Indication: Acute myeloid leukaemia
     Route: 065
     Dates: start: 20221213, end: 20221230
  2. HYDREA [Suspect]
     Active Substance: HYDROXYUREA
     Indication: Hyperleukocytosis
     Route: 065
     Dates: start: 20221220, end: 20221228
  3. VESANOID [Suspect]
     Active Substance: TRETINOIN
     Indication: Acute myeloid leukaemia
     Route: 065
     Dates: start: 20221209, end: 20221230

REACTIONS (1)
  - Extremity necrosis [Recovered/Resolved]

NARRATIVE: CASE EVENT DATE: 20221230
